FAERS Safety Report 6704349-9 (Version None)
Quarter: 2010Q2

REPORT INFORMATION
  Report Type: 
  Country: None (occurrence: None)
  Receive Date: 20100430
  Receipt Date: 20100421
  Transmission Date: 20101027
  Serious: Yes (Hospitalization)
  Sender: FDA-Public Use
  Company Number: JP-MERCK-1004USA00671

PATIENT
  Age: 40 Year
  Sex: Female

DRUGS (8)
  1. PEPCID RPD [Suspect]
     Route: 048
     Dates: start: 20090525, end: 20090603
  2. COLDRIN [Suspect]
     Route: 065
     Dates: start: 20090523, end: 20090603
  3. MUCODYNE [Suspect]
     Route: 065
     Dates: start: 20090523, end: 20090603
  4. TAMIFLU [Suspect]
     Route: 065
     Dates: start: 20090523, end: 20090527
  5. CALONAL [Suspect]
     Route: 065
     Dates: start: 20090523, end: 20090523
  6. KN SOLUTION 1A [Concomitant]
     Route: 065
     Dates: start: 20090525, end: 20090526
  7. NORNICICAMIN [Concomitant]
     Route: 065
     Dates: start: 20090525, end: 20090525
  8. ATROPINE SULFATE [Concomitant]
     Route: 065
     Dates: start: 20090525, end: 20090525

REACTIONS (1)
  - DRUG ERUPTION [None]
